FAERS Safety Report 12801275 (Version 1)
Quarter: 2016Q4

REPORT INFORMATION
  Report Type: Spontaneous
  Country: US (occurrence: US)
  Receive Date: 20161003
  Receipt Date: 20161003
  Transmission Date: 20170207
  Serious: Yes (Other)
  Sender: FDA-Public Use
  Company Number: US-AMGEN-USASP2016132219

PATIENT
  Age: 75 Year
  Sex: Female

DRUGS (13)
  1. DOXORUBICIN [Suspect]
     Active Substance: DOXORUBICIN
     Dosage: 60 MG/M2, UNK
     Route: 042
     Dates: start: 20110504
  2. BEVACIZUMAB [Suspect]
     Active Substance: BEVACIZUMAB
     Dosage: 10 MG/KG, UNK
     Route: 042
     Dates: start: 20110504
  3. CYCLOPHOSPHAMIDE. [Suspect]
     Active Substance: CYCLOPHOSPHAMIDE
     Indication: BREAST CANCER
     Dosage: CYCLE: 19 WEEKS (CYCLE 1, DAY 99), OVER 5-30 MIN ON DAY 1 OF WKS 13, 15, 17
     Route: 042
     Dates: start: 20110209
  4. ALBUTEROL SULFATE. [Concomitant]
     Active Substance: ALBUTEROL SULFATE
     Dosage: UNK
  5. IBUPROFEN. [Concomitant]
     Active Substance: IBUPROFEN
     Dosage: UNK
  6. PACLITAXEL. [Suspect]
     Active Substance: PACLITAXEL
     Indication: BREAST CANCER
     Dosage: CYCLE: 19 WEEKS (CYCLE 1, DAY 78), OVER 1 HR ON DAY 1 OF WKS 1-12
     Route: 042
  7. PACLITAXEL. [Suspect]
     Active Substance: PACLITAXEL
     Dosage: 80 MG/M2, UNK
     Route: 042
     Dates: start: 20110427
  8. DEXAMETHASONE. [Suspect]
     Active Substance: DEXAMETHASONE
     Indication: BREAST CANCER
     Dosage: UNK
     Route: 065
     Dates: start: 20110527
  9. PERCOCET [Concomitant]
     Active Substance: ACETAMINOPHEN\OXYCODONE HYDROCHLORIDE
  10. PEGFILGRASTIM [Suspect]
     Active Substance: PEGFILGRASTIM
     Indication: BREAST CANCER
     Dosage: UNK
     Route: 065
     Dates: start: 20110509
  11. BEVACIZUMAB [Suspect]
     Active Substance: BEVACIZUMAB
     Indication: BREAST CANCER
     Dosage: UNK,CYCLE: 19 WEEKS CYCLE 1, CTAY; 85), OVER 30-90 MIN ON CTAY I OF WKS 1, 3, 5, 7, 9, 11, 13, 15
     Route: 042
     Dates: start: 20110209
  12. CYCLOPHOSPHAMIDE. [Suspect]
     Active Substance: CYCLOPHOSPHAMIDE
     Dosage: 600 MG/M2, UNK
     Route: 042
     Dates: start: 20110518
  13. DOXORUBICIN [Suspect]
     Active Substance: DOXORUBICIN
     Indication: BREAST CANCER
     Dosage: , (CYCLE 1, DAY 85), 5-10 MIN ON DAY 1 OF WKS 13, 15, 17 AND 19UNK
     Route: 042
     Dates: start: 20110209

REACTIONS (3)
  - Obesity [Unknown]
  - Pain [Recovered/Resolved]
  - Onychomadesis [Recovered/Resolved]

NARRATIVE: CASE EVENT DATE: 20110521
